FAERS Safety Report 4916057-5 (Version None)
Quarter: 2006Q1

REPORT INFORMATION
  Report Type: 
  Country: None (occurrence: None)
  Receive Date: 20060217
  Receipt Date: 20051215
  Transmission Date: 20060701
  Serious: Yes (Hospitalization, Disabling, Other)
  Sender: FDA-Public Use
  Company Number: DK-ABBOTT-05P-044-0320355-00

PATIENT
  Sex: Female

DRUGS (5)
  1. HUMIRA [Suspect]
     Indication: RHEUMATOID ARTHRITIS
     Route: 058
     Dates: start: 20050616, end: 20051208
  2. INJ METOJECT [Concomitant]
     Indication: RHEUMATOID ARTHRITIS
     Route: 058
     Dates: start: 19970326
  3. SULFASALAZINE [Concomitant]
     Indication: RHEUMATOID ARTHRITIS
     Route: 048
     Dates: start: 19930101
  4. HYDROXYCHLOROQUINE SULFATE [Concomitant]
     Indication: RHEUMATOID ARTHRITIS
     Route: 048
     Dates: start: 20041109
  5. METOPROLOL SUCCINATE [Concomitant]
     Indication: HYPERTENSION
     Route: 048

REACTIONS (6)
  - ASTHENIA [None]
  - BRAIN NEOPLASM [None]
  - HEMIPARESIS [None]
  - IMMOBILE [None]
  - VISION BLURRED [None]
  - WHEELCHAIR USER [None]
